FAERS Safety Report 4755887-X (Version None)
Quarter: 2005Q3

REPORT INFORMATION
  Report Type: 
  Country: None (occurrence: None)
  Receive Date: 20050830
  Receipt Date: 20050722
  Transmission Date: 20060218
  Serious: No
  Sender: FDA-Public Use
  Company Number: US-BRISTOL-MYERS SQUIBB COMPANY-13047741

PATIENT
  Age: 57 Year
  Sex: Female

DRUGS (6)
  1. ERBITUX [Suspect]
     Indication: COLON CANCER
     Route: 042
     Dates: start: 20050413, end: 20050413
  2. ANZEMET [Concomitant]
     Indication: PREMEDICATION
     Route: 048
     Dates: start: 20050413, end: 20050413
  3. BENADRYL [Concomitant]
     Indication: PREMEDICATION
     Route: 048
     Dates: start: 20050413, end: 20050413
  4. DECADRON [Concomitant]
     Indication: PREMEDICATION
     Route: 048
     Dates: start: 20050413, end: 20050413
  5. ZANTAC [Concomitant]
     Indication: PREMEDICATION
     Route: 048
     Dates: start: 20050413, end: 20050413
  6. IRINOTECAN [Concomitant]
     Dosage: WEEKLY X 4 WEEKS WITH 2 WEEKS REST.
     Dates: start: 20050413, end: 20050413

REACTIONS (2)
  - DERMATITIS ACNEIFORM [None]
  - NAIL DISORDER [None]
